FAERS Safety Report 11513210 (Version 1)
Quarter: 2015Q3

REPORT INFORMATION
  Report Type: Spontaneous
  Country: US (occurrence: US)
  Receive Date: 20150916
  Receipt Date: 20150916
  Transmission Date: 20151125
  Serious: No
  Sender: FDA-Public Use
  Company Number: US-PERRIGO-15US001799

PATIENT
  Age: 82 Year
  Sex: Male
  Weight: 95.24 kg

DRUGS (12)
  1. PRESERVISION [Concomitant]
     Active Substance: MINERALS\VITAMINS
     Indication: ROUTINE HEALTH MAINTENANCE
     Dosage: UNK
     Route: 065
     Dates: start: 2013
  2. CRESTOR [Concomitant]
     Active Substance: ROSUVASTATIN CALCIUM
     Indication: BLOOD CHOLESTEROL INCREASED
     Dosage: 5 MG
     Route: 065
  3. GINKGO BILOBA [Concomitant]
     Active Substance: GINKGO
     Indication: SUPPLEMENTATION THERAPY
     Dosage: 60 MG
     Route: 065
     Dates: start: 2010
  4. VITAMIN D                          /00107901/ [Concomitant]
     Active Substance: ERGOCALCIFEROL
     Indication: OSTEITIS DEFORMANS
     Dosage: 2000 IU
     Route: 065
     Dates: start: 2012
  5. MAVIK [Concomitant]
     Active Substance: TRANDOLAPRIL
     Indication: HYPERTENSION
     Dosage: UNK
     Route: 065
     Dates: start: 2011
  6. PLAVIX [Concomitant]
     Active Substance: CLOPIDOGREL BISULFATE
     Indication: ANTICOAGULANT THERAPY
     Dosage: 75 MG
     Route: 065
     Dates: start: 2005
  7. IMIQUIMOD 5% 2H1 [Suspect]
     Active Substance: IMIQUIMOD
     Indication: ACTINIC KERATOSIS
     Dosage: 1 PACKET, QD AT BEDTIME
     Route: 061
     Dates: start: 20141023, end: 20141103
  8. PRESERVISION [Concomitant]
     Active Substance: MINERALS\VITAMINS
     Indication: MACULAR DEGENERATION
  9. IMIQUIMOD 5% 2H1 [Suspect]
     Active Substance: IMIQUIMOD
     Dosage: 1 PACKET, QD AT BEDTIME
     Route: 061
     Dates: start: 20141118, end: 20141129
  10. IMIQUIMOD 5% 2H1 [Suspect]
     Active Substance: IMIQUIMOD
     Dosage: 1 PACKET, QD AT BEDTIME
     Route: 061
     Dates: start: 20150207, end: 20150208
  11. FINASTERIDE. [Concomitant]
     Active Substance: FINASTERIDE
     Indication: PROSTATE CANCER
     Dosage: 5 MG
     Route: 065
     Dates: start: 2011
  12. VITAMIN C [Concomitant]
     Active Substance: ASCORBIC ACID
     Indication: SUPPLEMENTATION THERAPY
     Dosage: UNK
     Route: 065

REACTIONS (6)
  - Inappropriate schedule of drug administration [Recovered/Resolved]
  - Constipation [Recovered/Resolved]
  - Flatulence [Recovering/Resolving]
  - Diarrhoea [Recovered/Resolved]
  - Abdominal pain [Recovering/Resolving]
  - Bowel movement irregularity [Recovered/Resolved]

NARRATIVE: CASE EVENT DATE: 20141023
